FAERS Safety Report 6719977-4 (Version None)
Quarter: 2010Q2

REPORT INFORMATION
  Report Type: 
  Country: None (occurrence: None)
  Receive Date: 20100507
  Receipt Date: 20100428
  Transmission Date: 20101027
  Serious: Yes (Disabling)
  Sender: FDA-Public Use
  Company Number: 001551

PATIENT
  Age: 75 Year
  Sex: Male

DRUGS (8)
  1. ACETAMINOPHEN AND CODEINE PHOSPHATE [Suspect]
     Indication: PAIN
     Dosage: 8/DAYS ORAL
     Route: 048
     Dates: start: 20070718, end: 20090306
  2. FRUSEMIDE /00032601/ (FRUSEMIDE) [Concomitant]
     Indication: CARDIOVASCULAR DISORDER
     Dosage: 40 MG ORAL
     Route: 048
     Dates: start: 20050817, end: 20090713
  3. AMLODIPINE [Concomitant]
     Indication: CARDIOVASCULAR DISORDER
     Dosage: 5 MG ORAL
     Route: 048
     Dates: start: 20050817
  4. CARVEDILOL [Suspect]
     Indication: CARDIOVASCULAR DISORDER
     Dosage: 12.5 MG ORAL
     Route: 048
     Dates: start: 20081021, end: 20090710
  5. IRBESARTAN [Suspect]
     Indication: CARDIOVASCULAR DISORDER
     Dosage: 75 MG ORAL
     Route: 048
     Dates: start: 20060203
  6. RABEPRAZOLE SODIUM [Suspect]
     Indication: CARDIOVASCULAR DISORDER
     Dosage: 20 MG ORAL
     Route: 048
     Dates: start: 20060518, end: 20090708
  7. SIMVASTATIN [Suspect]
     Indication: CARDIOVASCULAR DISORDER
     Dosage: 40 MG ORAL
     Route: 048
     Dates: start: 20060203, end: 20090713
  8. ZIMOVANE (ZIMOVANE) [Suspect]
     Indication: INSOMNIA
     Dates: start: 20051014

REACTIONS (2)
  - ANGIOEDEMA [None]
  - DISEASE RECURRENCE [None]
